FAERS Safety Report 9490990 (Version 1)
Quarter: 2013Q3

REPORT INFORMATION
  Report Type: Spontaneous
  Country: US (occurrence: US)
  Receive Date: 20130830
  Receipt Date: 20130830
  Transmission Date: 20140515
  Serious: No
  Sender: FDA-Public Use
  Company Number: US-PFIZER INC-2013248574

PATIENT
  Sex: Female

DRUGS (9)
  1. CELEBREX [Suspect]
     Dosage: UNK
  2. NEXIUM [Suspect]
     Dosage: UNK
  3. OMEPRAZOLE [Suspect]
     Dosage: UNK
  4. CEFAZOLIN [Suspect]
     Dosage: UNK
  5. ROPINIROLE HYDROCHLORIDE [Suspect]
     Dosage: UNK
  6. SULFADIAZINE [Suspect]
     Dosage: UNK
  7. ASPIRIN [Suspect]
     Dosage: UNK
  8. CEPHALEXIN [Suspect]
     Dosage: UNK
  9. HYDROMORPHONE [Suspect]
     Dosage: UNK

REACTIONS (1)
  - Drug hypersensitivity [Unknown]
